FAERS Safety Report 23365525 (Version 1)
Quarter: 2024Q1

REPORT INFORMATION
  Report Type: Spontaneous
  Country: CN (occurrence: CN)
  Receive Date: 20240104
  Receipt Date: 20240104
  Transmission Date: 20240409
  Serious: Yes (Other)
  Sender: FDA-Public Use
  Company Number: CN-ALCON LABORATORIES-ALC2023CN005880

PATIENT
  Age: 8 Year
  Sex: Male
  Weight: 40 kg

DRUGS (1)
  1. CYCLOGYL [Suspect]
     Active Substance: CYCLOPENTOLATE HYDROCHLORIDE
     Indication: Refraction disorder
     Dosage: 1 DROP, TID (ONCE EVERY 5 MINUTES FOR A TOTAL OF 3 TIMES)
     Route: 061
     Dates: start: 20230211, end: 20230211

REACTIONS (2)
  - Altered state of consciousness [Recovered/Resolved]
  - Agitation [Recovered/Resolved]

NARRATIVE: CASE EVENT DATE: 20230211
